FAERS Safety Report 7491053-5 (Version None)
Quarter: 2011Q2

REPORT INFORMATION
  Report Type: 
  Country: None (occurrence: None)
  Receive Date: 20110518
  Receipt Date: 20110518
  Transmission Date: 20111010
  Serious: No
  Sender: FDA-Public Use
  Company Number: None

PATIENT

DRUGS (2)
  1. TORADOL [Suspect]
  2. CORTISONE ACETATE [Suspect]

REACTIONS (15)
  - INSOMNIA [None]
  - NERVOUSNESS [None]
  - FEELING ABNORMAL [None]
  - JOINT SWELLING [None]
  - THIRST [None]
  - RASH PRURITIC [None]
  - CRYING [None]
  - IMPAIRED HEALING [None]
  - ARTHRALGIA [None]
  - DRY MOUTH [None]
  - SCRATCH [None]
  - IMMUNE SYSTEM DISORDER [None]
  - ABDOMINAL DISCOMFORT [None]
  - HEADACHE [None]
  - DYSPHONIA [None]
